FAERS Safety Report 9710409 (Version 2)
Quarter: 2013Q4

REPORT INFORMATION
  Report Type: Spontaneous
  Country: US (occurrence: US)
  Receive Date: 20131126
  Receipt Date: 20131126
  Transmission Date: 20140711
  Serious: No
  Sender: FDA-Public Use
  Company Number: US-BRISTOL-MYERS SQUIBB COMPANY-18977553

PATIENT
  Age: 57 Year
  Sex: Female
  Weight: 68.03 kg

DRUGS (5)
  1. BYDUREON [Suspect]
     Indication: TYPE 2 DIABETES MELLITUS
     Dosage: NO OF INJECTIONS:8,8TH INJECTION ON 22JUL13
     Route: 058
     Dates: start: 20130603
  2. METFORMIN [Concomitant]
  3. LISINOPRIL [Concomitant]
  4. SERTRALINE [Concomitant]
  5. AMBIEN [Concomitant]

REACTIONS (5)
  - Drug ineffective [Unknown]
  - Urticaria [Not Recovered/Not Resolved]
  - Rash macular [Unknown]
  - Pruritus [Not Recovered/Not Resolved]
  - Injection site swelling [Unknown]
